FAERS Safety Report 5868434-6 (Version None)
Quarter: 2008Q3

REPORT INFORMATION
  Report Type: 
  Country: None (occurrence: None)
  Receive Date: 20080903
  Receipt Date: 20080826
  Transmission Date: 20090109
  Serious: Yes (Life-Threatening)
  Sender: FDA-Public Use
  Company Number: US-BAYER-US-2007-019855

PATIENT
  Age: 75 Year
  Sex: Female
  Weight: 67 kg

DRUGS (6)
  1. ULTRAVIST 300 [Suspect]
     Indication: COMPUTERISED TOMOGRAM
     Dosage: UNIT DOSE: 89 ML
     Route: 042
     Dates: start: 20070521, end: 20070521
  2. READI-CAT [Suspect]
     Indication: COMPUTERISED TOMOGRAM
     Dosage: UNIT DOSE: 900 ML
     Route: 048
     Dates: start: 20070521, end: 20070521
  3. LEXAPRO [Concomitant]
  4. DIOVAN [Concomitant]
  5. DUONEB [Concomitant]
  6. ALBUTEROL [Concomitant]

REACTIONS (5)
  - DEPRESSED LEVEL OF CONSCIOUSNESS [None]
  - DYSPNOEA [None]
  - ERYTHEMA [None]
  - FEELING HOT [None]
  - SNEEZING [None]
